FAERS Safety Report 10969069 (Version 1)
Quarter: 2015Q1

REPORT INFORMATION
  Report Type: Spontaneous
  Country: NL (occurrence: NL)
  Receive Date: 20150331
  Receipt Date: 20150331
  Transmission Date: 20150721
  Serious: Yes (Life-Threatening)
  Sender: FDA-Public Use
  Company Number: NL-009507513-1503NLD011218

PATIENT
  Age: 62 Year
  Sex: Male
  Weight: 73 kg

DRUGS (2)
  1. SIMVASTATIN. [Suspect]
     Active Substance: SIMVASTATIN
     Indication: MYOCARDIAL INFARCTION
     Dosage: ONCE DAILY 1 PIECE
     Route: 048
     Dates: start: 201108, end: 201401
  2. ASCAL CARDIO [Concomitant]
     Active Substance: CARBASALATE
     Dosage: ONCE DAILY 1 PIECE
     Route: 048
     Dates: start: 201108

REACTIONS (3)
  - Hepatic enzyme increased [Recovered/Resolved]
  - Arrhythmia [Recovered/Resolved]
  - Gastrointestinal disorder [Recovered/Resolved]

NARRATIVE: CASE EVENT DATE: 201312
